FAERS Safety Report 8870980 (Version 1)
Quarter: 2012Q4

REPORT INFORMATION
  Report Type: 
  Country: US (occurrence: US)
  Receive Date: 20121026
  Receipt Date: 20121026
  Transmission Date: 20130627
  Serious: No
  Sender: FDA-Public Use
  Company Number: US-AMGEN-USASP2012046566

PATIENT
  Age: 76 Year
  Sex: Female

DRUGS (8)
  1. ENBREL [Suspect]
     Indication: PRODUCT USED FOR UNKNOWN INDICATION
     Dosage: 50 mg, qwk
     Route: 058
  2. CYMBALTA [Concomitant]
     Dosage: 20 mg, UNK
  3. NEURONTIN [Concomitant]
     Dosage: 300 mg, UNK
  4. CLONAZEPAM [Concomitant]
     Dosage: 0.5 mg, UNK
  5. FOLIC ACID [Concomitant]
     Dosage: 1 mg, UNK
  6. PRILOSEC                           /00661201/ [Concomitant]
     Dosage: 2.5 mg, UNK
  7. VITAMIN D /00107901/ [Concomitant]
     Dosage: 5000 unit, UNK
  8. METHOTREXATE /00113802/ [Concomitant]
     Dosage: 25 mg/ ml

REACTIONS (3)
  - Constipation [Unknown]
  - Influenza [Unknown]
  - Diarrhoea [Unknown]
